FAERS Safety Report 10610987 (Version 2)
Quarter: 2015Q1

REPORT INFORMATION
  Report Type: Spontaneous
  Country: US (occurrence: US)
  Receive Date: 20141126
  Receipt Date: 20150106
  Transmission Date: 20150720
  Serious: Yes (Other)
  Sender: FDA-Public Use
  Company Number: US-BAYER-2014-174074

PATIENT
  Age: 20 Year
  Sex: Female
  Weight: 79.36 kg

DRUGS (1)
  1. MIRENA [Suspect]
     Active Substance: LEVONORGESTREL
     Indication: CONTRACEPTION
     Dosage: 20 MCG/24HR, CONT
     Route: 015
     Dates: start: 20141016, end: 20141211

REACTIONS (2)
  - Embedded device [Recovered/Resolved]
  - Off label use [None]

NARRATIVE: CASE EVENT DATE: 20141016
